FAERS Safety Report 4811577-6 (Version None)
Quarter: 2005Q4

REPORT INFORMATION
  Report Type: 
  Country: None (occurrence: None)
  Receive Date: 20051025
  Receipt Date: 20050915
  Transmission Date: 20060501
  Serious: Yes (Other)
  Sender: FDA-Public Use
  Company Number: 12688

PATIENT
  Age: 47 Year
  Sex: Female

DRUGS (4)
  1. CARBOPLATIN [Suspect]
     Indication: OVARIAN EPITHELIAL CANCER RECURRENT
     Dosage: 450 MG DAILY IV
     Route: 042
  2. GRANISETRON [Concomitant]
  3. DOXORUBICIN [Concomitant]
  4. DEXAMETHASONE [Concomitant]

REACTIONS (5)
  - CONDITION AGGRAVATED [None]
  - OBSTRUCTIVE AIRWAYS DISORDER [None]
  - PRURITUS [None]
  - RESTLESSNESS [None]
  - VOMITING [None]
